FAERS Safety Report 6178734-0 (Version None)
Quarter: 2009Q2

REPORT INFORMATION
  Report Type: 
  Country: None (occurrence: None)
  Receive Date: 20090504
  Receipt Date: 20081105
  Transmission Date: 20091009
  Serious: No
  Sender: FDA-Public Use
  Company Number: US-ALEXION-A200800331

PATIENT

DRUGS (4)
  1. SOLIRIS [Suspect]
     Indication: PAROXYSMAL NOCTURNAL HAEMOGLOBINURIA
     Dosage: UNK, UNK
     Route: 042
     Dates: start: 20050101
  2. SOLIRIS [Suspect]
     Dosage: 900 MG, Q12D
     Route: 042
  3. SOLIRIS [Suspect]
     Dosage: 1200 MG, Q2W
     Route: 042
  4. HUMIRA [Concomitant]
     Indication: CROHN'S DISEASE

REACTIONS (3)
  - CHROMATURIA [None]
  - NASOPHARYNGITIS [None]
  - SINUSITIS [None]
